FAERS Safety Report 8624537-4 (Version None)
Quarter: 2012Q3

REPORT INFORMATION
  Report Type: 
  Country: None (occurrence: None)
  Receive Date: 20120827
  Receipt Date: 20120823
  Transmission Date: 20120928
  Serious: Yes (Death, Other)
  Sender: FDA-Public Use
  Company Number: AU-PFIZER INC-2012181938

PATIENT
  Age: 43 Year
  Sex: Male

DRUGS (1)
  1. TORISEL [Suspect]
     Indication: RENAL CANCER METASTATIC
     Dosage: 25 MG, WEEKLY
     Route: 042
     Dates: start: 20120601, end: 20120724

REACTIONS (3)
  - DISEASE PROGRESSION [None]
  - RENAL CANCER METASTATIC [None]
  - RESPIRATORY DISTRESS [None]
